FAERS Safety Report 5611081-1 (Version None)
Quarter: 2008Q1

REPORT INFORMATION
  Report Type: 
  Country: None (occurrence: None)
  Receive Date: 20080129
  Receipt Date: 20080117
  Transmission Date: 20080703
  Serious: Yes (Hospitalization)
  Sender: FDA-Public Use
  Company Number: TPA2008A00094

PATIENT
  Age: 79 Year
  Sex: Male

DRUGS (9)
  1. ACTOS [Suspect]
     Dosage: 30 MG, 1 IN 1 D, PER ORAL
     Route: 048
     Dates: start: 20070802, end: 20070804
  2. COZAAR [Concomitant]
  3. CARTID (DILITIAZEM) [Concomitant]
  4. PLAVIX [Concomitant]
  5. GLUCOTROL XL [Concomitant]
  6. ATENOLOL [Concomitant]
  7. SIMVASTATIN [Concomitant]
  8. NIACIN [Concomitant]
  9. ASPIRIN [Concomitant]

REACTIONS (1)
  - ATRIAL FIBRILLATION [None]
